FAERS Safety Report 6219331-8 (Version None)
Quarter: 2009Q2

REPORT INFORMATION
  Report Type: 
  Country: None (occurrence: None)
  Receive Date: 20090609
  Receipt Date: 20090528
  Transmission Date: 20091009
  Serious: Yes (Hospitalization)
  Sender: FDA-Public Use
  Company Number: CH-PFIZER INC-2009214977

PATIENT
  Age: 27 Year

DRUGS (6)
  1. VFEND [Suspect]
     Dosage: 200 MG, 2X/DAY
     Route: 048
     Dates: start: 20090221
  2. CITALOPRAM [Concomitant]
     Dosage: 20 MG, 1X/DAY
     Route: 048
  3. PANTOZOL [Concomitant]
     Dosage: 40 MG, 1X/DAY
     Route: 048
  4. FRAGMIN [Concomitant]
     Dosage: 15000 IU, 1X/DAY
     Route: 058
  5. ONCOVIN [Concomitant]
     Dosage: 2 MG, 1X/DAY
     Route: 042
     Dates: start: 20090514, end: 20090514
  6. METHOTREXATE [Concomitant]
     Dosage: 5400 MG, 1X/DAY
     Route: 042
     Dates: start: 20090514, end: 20090514

REACTIONS (1)
  - HAEMOLYTIC ANAEMIA [None]
